FAERS Safety Report 8615319-8 (Version None)
Quarter: 2012Q3

REPORT INFORMATION
  Report Type: 
  Country: None (occurrence: None)
  Receive Date: 20120823
  Receipt Date: 20120814
  Transmission Date: 20120928
  Serious: Yes (Other)
  Sender: FDA-Public Use
  Company Number: IE-ELI_LILLY_AND_COMPANY-IE201208004858

PATIENT
  Sex: Male

DRUGS (2)
  1. ZYPREXA [Suspect]
     Dosage: 385 MG, UNKNOWN
     Route: 048
  2. ZYPREXA [Suspect]
     Dosage: 1 DF, UNKNOWN
     Route: 048

REACTIONS (3)
  - SWELLING [None]
  - DERMATITIS BULLOUS [None]
  - OVERDOSE [None]
